FAERS Safety Report 18371890 (Version 2)
Quarter: 2020Q4

REPORT INFORMATION
  Report Type: Report from Study
  Country: US (occurrence: US)
  Receive Date: 20201012
  Receipt Date: 20201015
  Transmission Date: 20210114
  Serious: No
  Sender: FDA-Public Use
  Company Number: NVSC2020US267685

PATIENT
  Age: 48 Year

DRUGS (1)
  1. COSENTYX [Suspect]
     Active Substance: SECUKINUMAB
     Indication: PSORIASIS
     Dosage: 300 MG, Q4W (BENEATH THE SKIN, UAUALLY VIA INJECTION)
     Route: 058
     Dates: start: 20200824

REACTIONS (3)
  - Inappropriate schedule of product administration [Unknown]
  - Arthralgia [Unknown]
  - Psoriasis [Unknown]
